FAERS Safety Report 11509674 (Version 1)
Quarter: 2015Q3

REPORT INFORMATION
  Report Type: Spontaneous
  Country: US (occurrence: US)
  Receive Date: 20150915
  Receipt Date: 20150915
  Transmission Date: 20151125
  Serious: No
  Sender: FDA-Public Use
  Company Number: US-JNJFOC-20150612230

PATIENT
  Age: 52 Year
  Sex: Female
  Weight: 86.18 kg

DRUGS (3)
  1. UNKNOWN MEDICATION [Concomitant]
     Active Substance: UNSPECIFIED INGREDIENT
     Route: 065
  2. TYLENOL EXTRA STRENGTH [Suspect]
     Active Substance: ACETAMINOPHEN
     Indication: FIBROMYALGIA
     Route: 048
  3. TYLENOL EXTRA STRENGTH [Suspect]
     Active Substance: ACETAMINOPHEN
     Indication: FIBROMYALGIA
     Dosage: 2 CAPLETS TWICE DAILY
     Route: 048

REACTIONS (4)
  - Product difficult to swallow [Not Recovered/Not Resolved]
  - Cough [Recovered/Resolved]
  - Choking sensation [Recovered/Resolved]
  - Wrong technique in product usage process [Unknown]
